FAERS Safety Report 10965913 (Version 1)
Quarter: 2015Q1

REPORT INFORMATION
  Report Type: Spontaneous
  Country: US (occurrence: None)
  Receive Date: 20150226
  Receipt Date: 20150226
  Transmission Date: 20150721
  Serious: No
  Sender: FDA-Public Use
  Company Number: TPA2010A04827

PATIENT
  Age: 63 Year
  Sex: Male
  Weight: 136.08 kg

DRUGS (12)
  1. TAMSULOSIN (TAMSULOSIN) [Concomitant]
     Active Substance: TAMSULOSIN
  2. LUNESTA (ALL OTHER THERAPEUTIC PRODUCTS) [Concomitant]
  3. AMBIEN [Concomitant]
     Active Substance: ZOLPIDEM TARTRATE
  4. COENZYME Q10 (UBIDECARENONE) [Concomitant]
  5. ULORIC [Suspect]
     Active Substance: FEBUXOSTAT
     Indication: GOUT
     Route: 048
     Dates: start: 2010, end: 201006
  6. CLONIDINE (CLONIDINE) [Concomitant]
     Active Substance: CLONIDINE
  7. CITRICAL (CALCIUM CARBONATE) [Concomitant]
  8. SUPER B-COMPLEX (ALL OTHER THERAPEUTIC PRODUCTS) [Concomitant]
  9. COLCHICINE (COLCHICINE) [Concomitant]
     Active Substance: COLCHICINE
  10. FUROSEMIDE (FUROSEMIDE) [Concomitant]
     Active Substance: FUROSEMIDE
  11. PREDNISONE (PREDNISONE) [Concomitant]
     Active Substance: PREDNISONE
  12. SLO-NIACIN (NICOTINIC ACID) [Concomitant]

REACTIONS (2)
  - Gout [None]
  - Condition aggravated [None]

NARRATIVE: CASE EVENT DATE: 2010
